FAERS Safety Report 24677287 (Version 1)
Quarter: 2024Q4

REPORT INFORMATION
  Report Type: Spontaneous
  Country: US (occurrence: US)
  Receive Date: 20241129
  Receipt Date: 20241129
  Transmission Date: 20250114
  Serious: No
  Sender: AMGEN
  Company Number: US-AMGEN-USASP2024234172

PATIENT
  Sex: Male

DRUGS (1)
  1. AMJEVITA [Suspect]
     Active Substance: ADALIMUMAB-ATTO
     Indication: Product used for unknown indication
     Dosage: 40 MILLIGRAM PER 0.4 MILLILITRE, Q2WK
     Route: 058

REACTIONS (3)
  - Liver function test abnormal [Unknown]
  - Blood pressure increased [Unknown]
  - Headache [Unknown]
